FAERS Safety Report 15701924 (Version 3)
Quarter: 2019Q2

REPORT INFORMATION
  Report Type: Spontaneous
  Country: US (occurrence: US)
  Receive Date: 20181209
  Receipt Date: 20190517
  Transmission Date: 20190711
  Serious: No
  Sender: FDA-Public Use
  Company Number: US-JNJFOC-20181126477

PATIENT
  Age: 31 Year
  Sex: Female

DRUGS (2)
  1. STELARA [Suspect]
     Active Substance: USTEKINUMAB
     Indication: PRODUCT USED FOR UNKNOWN INDICATION
     Dosage: ON DAY 0 AT WEEK 4 AND ONCE EVERY 12 WEEKS
     Route: 058
     Dates: start: 20181107
  2. FISH OIL [Concomitant]
     Active Substance: FISH OIL
     Route: 065

REACTIONS (5)
  - Psoriasis [Not Recovered/Not Resolved]
  - Hypertension [Not Recovered/Not Resolved]
  - Drug ineffective [Unknown]
  - Depression [Not Recovered/Not Resolved]
  - Peripheral swelling [Not Recovered/Not Resolved]

NARRATIVE: CASE EVENT DATE: 201811
